FAERS Safety Report 24104131 (Version 2)
Quarter: 2024Q3

REPORT INFORMATION
  Report Type: Spontaneous
  Country: US (occurrence: US)
  Receive Date: 20240717
  Receipt Date: 20240729
  Transmission Date: 20241016
  Serious: Yes (Hospitalization, Other)
  Sender: BRISTOL MYERS SQUIBB
  Company Number: US-BRISTOL-MYERS SQUIBB COMPANY-2024-110858

PATIENT
  Age: 71 Year
  Sex: Male
  Weight: 105.23 kg

DRUGS (1)
  1. REVLIMID [Suspect]
     Active Substance: LENALIDOMIDE
     Indication: Plasma cell myeloma
     Dosage: 1 CAPSULE DAILY
     Route: 048

REACTIONS (3)
  - Glycosylated haemoglobin increased [Unknown]
  - Eye swelling [Unknown]
  - Renal impairment [Not Recovered/Not Resolved]
